FAERS Safety Report 10672736 (Version 3)
Quarter: 2015Q1

REPORT INFORMATION
  Report Type: Report from Study
  Country: US (occurrence: US)
  Receive Date: 20141223
  Receipt Date: 20150105
  Transmission Date: 20150720
  Serious: Yes (Death, Hospitalization, Other)
  Sender: FDA-Public Use
  Company Number: US-EXELIXIS-CABO-14004462

PATIENT
  Age: 17 Year
  Sex: Male
  Weight: 87.73 kg

DRUGS (5)
  1. CABOZANTINIB [Suspect]
     Active Substance: CABOZANTINIB
     Dosage: 80 MG, QD
     Route: 048
     Dates: start: 20141113, end: 20141120
  2. CABOZANTINIB [Suspect]
     Active Substance: CABOZANTINIB
     Indication: THYROID CANCER
     Dosage: 100 MG, QD
     Route: 048
     Dates: start: 20140510, end: 2014
  3. CABOZANTINIB [Suspect]
     Active Substance: CABOZANTINIB
     Dosage: 100 MG, QD
     Route: 048
     Dates: start: 20140605, end: 20140814
  4. TYLENOL [Concomitant]
     Active Substance: ACETAMINOPHEN
  5. CABOZANTINIB [Suspect]
     Active Substance: CABOZANTINIB
     Dosage: 60 MG, QD
     Route: 048
     Dates: start: 20140516, end: 20140604

REACTIONS (14)
  - Chronic kidney disease [Fatal]
  - Hepatic neoplasm [Unknown]
  - Metastases to liver [Unknown]
  - Malignant neoplasm progression [Fatal]
  - Hypocalcaemia [Unknown]
  - Blister [Unknown]
  - Metastases to bone [Unknown]
  - Ammonia increased [Unknown]
  - Hepatic failure [Fatal]
  - Hyperaesthesia [Unknown]
  - Blood bilirubin increased [Unknown]
  - Blood alkaline phosphatase increased [Unknown]
  - Lipase increased [Unknown]
  - Palmar-plantar erythrodysaesthesia syndrome [Unknown]

NARRATIVE: CASE EVENT DATE: 2014
